FAERS Safety Report 5744978-2 (Version None)
Quarter: 2008Q2

REPORT INFORMATION
  Report Type: 
  Country: None (occurrence: None)
  Receive Date: 20080521
  Receipt Date: 20080520
  Transmission Date: 20081010
  Serious: Yes (Other)
  Sender: FDA-Public Use
  Company Number: US-BAYER-200714673NA

PATIENT
  Age: 17 Year
  Sex: Female
  Weight: 76 kg

DRUGS (3)
  1. YASMIN [Suspect]
     Indication: PREMENSTRUAL SYNDROME
     Route: 048
     Dates: start: 20070711, end: 20071031
  2. MULTI-VITAMIN [Concomitant]
     Indication: DRUG USE FOR UNKNOWN INDICATION
  3. PROZAC [Concomitant]
     Indication: DEPRESSION

REACTIONS (4)
  - FATIGUE [None]
  - HYPERSOMNIA [None]
  - NIGHTMARE [None]
  - SOMNAMBULISM [None]
